FAERS Safety Report 9750549 (Version 1)
Quarter: 2013Q4

REPORT INFORMATION
  Report Type: Spontaneous
  Country: US (occurrence: US)
  Receive Date: 20131212
  Receipt Date: 20131212
  Transmission Date: 20140711
  Serious: No
  Sender: FDA-Public Use
  Company Number: US-BIOGENIDEC-2013BI090289

PATIENT
  Age: 70 Year
  Sex: Female

DRUGS (5)
  1. TECFIDERA [Suspect]
     Indication: MULTIPLE SCLEROSIS
  2. TECFIDERA [Suspect]
     Indication: MULTIPLE SCLEROSIS
     Dates: start: 20130629, end: 20130731
  3. TECFIDERA [Suspect]
     Indication: MULTIPLE SCLEROSIS
     Route: 048
     Dates: start: 20130701, end: 20130728
  4. AVONEX [Concomitant]
     Indication: MULTIPLE SCLEROSIS
     Route: 030
     Dates: start: 19980801, end: 20070101
  5. AVONEX [Concomitant]
     Indication: MULTIPLE SCLEROSIS
     Route: 030
     Dates: start: 20080203

REACTIONS (8)
  - Stasis dermatitis [Not Recovered/Not Resolved]
  - Hypersensitivity [Recovered/Resolved]
  - Adverse drug reaction [Unknown]
  - Bladder disorder [Not Recovered/Not Resolved]
  - Blood glucose increased [Recovered/Resolved]
  - Gait disturbance [Unknown]
  - Neurogenic bladder [Not Recovered/Not Resolved]
  - Pharyngeal oedema [Unknown]
